FAERS Safety Report 9387022 (Version 2)
Quarter: 2013Q3

REPORT INFORMATION
  Report Type: Spontaneous
  Country: JP (occurrence: JP)
  Receive Date: 20130708
  Receipt Date: 20130808
  Transmission Date: 20140515
  Serious: Yes (Other)
  Sender: FDA-Public Use
  Company Number: JP-ELI_LILLY_AND_COMPANY-JP201305007897

PATIENT
  Age: 65 Year
  Sex: Male

DRUGS (2)
  1. HUMULIN 30% REGULAR, 70% NPH [Suspect]
     Indication: TYPE 2 DIABETES MELLITUS
     Dosage: UNK
     Route: 058
     Dates: start: 20060524, end: 20070301
  2. HUMALOG LISPRO [Suspect]
     Indication: TYPE 2 DIABETES MELLITUS
     Dosage: UNK
     Route: 058
     Dates: start: 20070301, end: 20070417

REACTIONS (3)
  - Hypoglycaemia [Recovered/Resolved]
  - Anti-insulin antibody positive [Recovered/Resolved]
  - Hyperglycaemia [Recovered/Resolved]
